FAERS Safety Report 9304910 (Version 1)
Quarter: 2013Q2

REPORT INFORMATION
  Report Type: Spontaneous
  Country: JP (occurrence: None)
  Receive Date: 20130520
  Receipt Date: 20130520
  Transmission Date: 20140414
  Serious: Yes (Hospitalization)
  Sender: FDA-Public Use
  Company Number: SYM-2013-03723

PATIENT
  Sex: 0

DRUGS (6)
  1. FLUOROURACIL [Suspect]
     Indication: OESOPHAGEAL SQUAMOUS CELL CARCINOMA
  2. DOCETAXEL [Suspect]
     Indication: OESOPHAGEAL SQUAMOUS CELL CARCINOMA
  3. CISPLATIN [Suspect]
     Indication: OESOPHAGEAL SQUAMOUS CELL CARCINOMA
     Dosage: 70 MG, EVERY CYCLE
  4. THERAPEUTIC RADIOPHARMACEUTICAL [Suspect]
     Indication: OESOPHAGEAL SQUAMOUS CELL CARCINOMA
  5. CORTICOSTEROIDS(CORTICOSTEROIDS) [Concomitant]
  6. ANTIEMETICS AND ANTINAUSEANTS(ANTIEMETICS AND ANTINAUSEANTS) [Concomitant]

REACTIONS (1)
  - Oesophagitis [None]
